FAERS Safety Report 24950225 (Version 1)
Quarter: 2025Q1

REPORT INFORMATION
  Report Type: Spontaneous
  Country: US (occurrence: US)
  Receive Date: 20250210
  Receipt Date: 20250210
  Transmission Date: 20250409
  Serious: Yes (Other)
  Sender: JUBILANT
  Company Number: US-JUBILANT CADISTA PHARMACEUTICALS-2025JUB00012

PATIENT
  Age: 49 Year
  Sex: Female

DRUGS (1)
  1. METHYLPREDNISOLONE [Suspect]
     Active Substance: METHYLPREDNISOLONE
     Indication: Multiple sclerosis relapse
     Route: 042

REACTIONS (1)
  - Hepatocellular injury [Unknown]
